FAERS Safety Report 18318257 (Version 2)
Quarter: 2022Q1

REPORT INFORMATION
  Report Type: Spontaneous
  Country: CA (occurrence: CA)
  Receive Date: 20200928
  Receipt Date: 20220223
  Transmission Date: 20220423
  Serious: Yes (Other)
  Sender: FDA-Public Use
  Company Number: None

PATIENT
  Sex: Male

DRUGS (16)
  1. METHOTREXATE [Suspect]
     Active Substance: METHOTREXATE
     Indication: Product used for unknown indication
     Route: 065
  2. HYDROXYCHLOROQUINE SULFATE [Suspect]
     Active Substance: HYDROXYCHLOROQUINE SULFATE
     Indication: Product used for unknown indication
     Route: 065
  3. ENBREL [Suspect]
     Active Substance: ETANERCEPT
     Indication: Product used for unknown indication
     Route: 065
  4. HUMIRA [Suspect]
     Active Substance: ADALIMUMAB
     Indication: Product used for unknown indication
     Route: 058
  5. MINOCYCLINE [Suspect]
     Active Substance: MINOCYCLINE HYDROCHLORIDE
     Indication: Product used for unknown indication
     Route: 065
  6. PLAQUENIL [Suspect]
     Active Substance: HYDROXYCHLOROQUINE SULFATE
     Indication: Product used for unknown indication
     Route: 065
  7. RIFAMPIN [Suspect]
     Active Substance: RIFAMPIN
     Indication: Product used for unknown indication
     Route: 065
  8. RIFAMPIN [Suspect]
     Active Substance: RIFAMPIN
     Indication: Product used for unknown indication
     Route: 065
  9. CHLORMEZANONE [Concomitant]
     Active Substance: CHLORMEZANONE
  10. COLCHICINE [Concomitant]
     Active Substance: COLCHICINE
  11. DEXLANSOPRAZOLE [Concomitant]
     Active Substance: DEXLANSOPRAZOLE
  12. DICLOFENAC SODIUM [Concomitant]
     Active Substance: DICLOFENAC SODIUM
  13. HYDROMORPHONE [Concomitant]
     Active Substance: HYDROMORPHONE
  14. PREDNISONE [Concomitant]
     Active Substance: PREDNISONE
  15. QUETIAPINE [Concomitant]
     Active Substance: QUETIAPINE
  16. TRAZODONE [Concomitant]
     Active Substance: TRAZODONE HYDROCHLORIDE

REACTIONS (7)
  - Condition aggravated [Unknown]
  - Eye disorder [Unknown]
  - Hip surgery [Unknown]
  - Hypertension [Unknown]
  - Pneumonia [Unknown]
  - Post procedural infection [Unknown]
  - Restless legs syndrome [Unknown]
